FAERS Safety Report 7685550-7 (Version None)
Quarter: 2011Q3

REPORT INFORMATION
  Report Type: 
  Country: None (occurrence: None)
  Receive Date: 20110816
  Receipt Date: 20110804
  Transmission Date: 20111222
  Serious: Yes (Hospitalization, Other)
  Sender: FDA-Public Use
  Company Number: DE-JNJFOC-20110707105

PATIENT
  Age: 81 Year
  Sex: Female
  Weight: 62 kg

DRUGS (7)
  1. RISPERIDONE [Suspect]
     Indication: PRODUCT USED FOR UNKNOWN INDICATION
     Route: 048
     Dates: start: 20110528, end: 20110608
  2. MELPERONE [Suspect]
     Indication: ANXIETY DISORDER
     Dosage: 20-50 MG DAILY
     Route: 048
     Dates: start: 20110316, end: 20110323
  3. SIMAVASTATIN [Concomitant]
     Dates: start: 20100101
  4. IBUPROFEN [Suspect]
     Indication: PRODUCT USED FOR UNKNOWN INDICATION
     Dosage: DAILY
     Route: 048
     Dates: start: 20100909, end: 20110331
  5. DULCOLAX [Concomitant]
     Dates: start: 20101001, end: 20110322
  6. HYPROMELLOSE [Concomitant]
     Dates: start: 20080401
  7. ALL OTHER THERAPEUTIC PRODUCTS [Concomitant]
     Indication: PRODUCT USED FOR UNKNOWN INDICATION
     Dosage: 1 DF ORAL VALERIAN ROOT
     Route: 048
     Dates: start: 20101001

REACTIONS (3)
  - CHOLELITHIASIS [None]
  - HEPATITIS ACUTE [None]
  - HEPATIC STEATOSIS [None]
